FAERS Safety Report 10945511 (Version 1)
Quarter: 2015Q1

REPORT INFORMATION
  Report Type: Spontaneous
  Country: US (occurrence: None)
  Receive Date: 20150318
  Receipt Date: 20150318
  Transmission Date: 20150721
  Serious: Yes (Other)
  Sender: FDA-Public Use
  Company Number: 2013SA095626

PATIENT
  Age: 49 Year
  Sex: Female

DRUGS (6)
  1. TECFIDERA [Concomitant]
     Active Substance: DIMETHYL FUMARATE
  2. COPAXONE [Concomitant]
     Active Substance: GLATIRAMER ACETATE
  3. AUBAGIO [Suspect]
     Active Substance: TERIFLUNOMIDE
     Indication: MULTIPLE SCLEROSIS
     Route: 048
     Dates: start: 20130813, end: 20141101
  4. PROGESTERONE. [Concomitant]
     Active Substance: PROGESTERONE
  5. REBIF [Concomitant]
     Active Substance: INTERFERON BETA-1A
  6. BIOTIN [Concomitant]
     Active Substance: BIOTIN

REACTIONS (13)
  - Cognitive disorder [None]
  - Paraesthesia [None]
  - Decreased appetite [None]
  - Gastrointestinal disorder [None]
  - Alopecia [None]
  - Dyspnoea [None]
  - Drug dose omission [None]
  - Anxiety [None]
  - Dyspepsia [None]
  - Dysgeusia [None]
  - Diarrhoea [None]
  - Abdominal pain upper [None]
  - Nausea [None]
